FAERS Safety Report 9592538 (Version 4)
Quarter: 2014Q4

REPORT INFORMATION
  Report Type: Spontaneous
  Country: US (occurrence: US)
  Receive Date: 20131004
  Receipt Date: 20141002
  Transmission Date: 20150529
  Serious: Yes (Hospitalization, Other)
  Sender: FDA-Public Use
  Company Number: US-BAYER-2013-119675

PATIENT
  Age: 23 Year
  Sex: Female
  Weight: 70.3 kg

DRUGS (2)
  1. DOXYCYCLINE. [Concomitant]
     Active Substance: DOXYCYCLINE
     Indication: INFECTION PROPHYLAXIS
     Dosage: UNK
     Dates: start: 2008
  2. MIRENA [Suspect]
     Active Substance: LEVONORGESTREL
     Indication: CONTRACEPTION
     Dosage: 20 MCG/24HR, CONT
     Route: 015
     Dates: start: 20110421, end: 20121005

REACTIONS (15)
  - Pain [None]
  - Procedural pain [None]
  - Injury [None]
  - Emotional distress [None]
  - Medical device pain [None]
  - Scar [None]
  - Stress [None]
  - Device failure [None]
  - Uterine perforation [None]
  - Depression [None]
  - Vaginal infection [None]
  - Anxiety [None]
  - Menorrhagia [None]
  - Psychiatric symptom [None]
  - Discomfort [None]

NARRATIVE: CASE EVENT DATE: 2011
